FAERS Safety Report 14916181 (Version 4)
Quarter: 2019Q1

REPORT INFORMATION
  Report Type: Report from Study
  Country: US (occurrence: US)
  Receive Date: 20180518
  Receipt Date: 20190322
  Transmission Date: 20190417
  Serious: Yes (Hospitalization)
  Sender: FDA-Public Use
  Company Number: PHEH2018US019066

PATIENT
  Sex: Female

DRUGS (1)
  1. ENTRESTO [Suspect]
     Active Substance: SACUBITRIL\VALSARTAN
     Indication: CARDIAC FAILURE
     Dosage: 2 DF, QD
     Route: 048

REACTIONS (6)
  - Back pain [Unknown]
  - Grip strength decreased [Unknown]
  - Cough [Unknown]
  - Blood count abnormal [Unknown]
  - Blood glucose decreased [Unknown]
  - Rhinorrhoea [Unknown]
